FAERS Safety Report 5406695-8 (Version None)
Quarter: 2007Q3

REPORT INFORMATION
  Report Type: 
  Country: None (occurrence: None)
  Receive Date: 20070803
  Receipt Date: 20070803
  Transmission Date: 20080115
  Serious: No
  Sender: FDA-Public Use
  Company Number: None

PATIENT
  Age: 46 Year
  Sex: Male

DRUGS (2)
  1. MS CONTIN [Suspect]
     Indication: ARTHRALGIA
     Dosage: 15 MG BID PO
     Route: 048
     Dates: start: 20070725
  2. MS CONTIN [Suspect]
     Indication: OSTEOMYELITIS
     Dosage: 15 MG BID PO
     Route: 048
     Dates: start: 20070725

REACTIONS (1)
  - MYOCLONUS [None]
